FAERS Safety Report 9160632 (Version 1)
Quarter: 2013Q1

REPORT INFORMATION
  Report Type: Spontaneous
  Country: US (occurrence: US)
  Receive Date: 20130313
  Receipt Date: 20130313
  Transmission Date: 20140127
  Serious: Yes (Other)
  Sender: FDA-Public Use
  Company Number: US-ABBOTT-12P-163-0927021-00

PATIENT
  Age: 32 Year
  Sex: Female

DRUGS (2)
  1. DEPAKOTE [Suspect]
     Indication: CONVULSION
  2. DIVALPROEX SODIUM [Suspect]
     Indication: CONVULSION

REACTIONS (1)
  - Convulsion [Recovered/Resolved]
